FAERS Safety Report 5850317-9 (Version None)
Quarter: 2008Q3

REPORT INFORMATION
  Report Type: 
  Country: None (occurrence: None)
  Receive Date: 20080731
  Receipt Date: 20080429
  Transmission Date: 20090109
  Serious: No
  Sender: FDA-Public Use
  Company Number: US200804003070

PATIENT
  Age: 44 Year
  Sex: Female
  Weight: 170.1 kg

DRUGS (18)
  1. BYETTA [Suspect]
     Indication: TYPE 2 DIABETES MELLITUS
     Dosage: 5 UG, EACH EVENING, SUBCUTANEOUS
     Route: 058
     Dates: start: 20080107, end: 20080119
  2. EXENATIDE PEN, DISPOSABLE DEVICE (EXENATIDE PEN) PEN,DISPOSABLE [Concomitant]
  3. LANTUS [Concomitant]
  4. LEVEMIR [Concomitant]
  5. PHENERGAN HCL [Concomitant]
  6. CHOLESTYRAMINE RESIN (COLESTYRAMINE) [Concomitant]
  7. LEVBID (HYOSCYAMINE SULFATE) [Concomitant]
  8. MOTRIN [Concomitant]
  9. ZANTAC [Concomitant]
  10. WELLBUTRIN [Concomitant]
  11. PAXIL [Concomitant]
  12. CLONAZEPAM [Concomitant]
  13. TRAZODONE HCL [Concomitant]
  14. XANAX [Concomitant]
  15. ALPHAGAN P [Concomitant]
  16. ACTOS [Concomitant]
  17. LOVASTATIN [Concomitant]
  18. ALBUTEROL [Concomitant]

REACTIONS (9)
  - ALOPECIA [None]
  - ANXIETY [None]
  - DIARRHOEA [None]
  - FEELING JITTERY [None]
  - NAUSEA [None]
  - PAIN OF SKIN [None]
  - RASH PRURITIC [None]
  - RESTLESSNESS [None]
  - VOMITING [None]
